FAERS Safety Report 5372454-8 (Version None)
Quarter: 2007Q2

REPORT INFORMATION
  Report Type: 
  Country: None (occurrence: None)
  Receive Date: 20070625
  Receipt Date: 20070612
  Transmission Date: 20071010
  Serious: Yes (Other)
  Sender: FDA-Public Use
  Company Number: B0476079A

PATIENT
  Age: 56 Year
  Sex: Male

DRUGS (1)
  1. ROSIGLITAZONE MALEATE + METFORMIN HYDROCHLORIDE (FORMULATION (ROSIGLIT [Suspect]

REACTIONS (7)
  - ABDOMINAL DISTENSION [None]
  - DIPLOPIA [None]
  - EXOPHTHALMOS [None]
  - FAT TISSUE INCREASED [None]
  - OPTIC DISC DISORDER [None]
  - OPTIC NEUROPATHY [None]
  - PAPILLARY THYROID CANCER [None]
